FAERS Safety Report 4379066-3 (Version None)
Quarter: 2004Q2

REPORT INFORMATION
  Report Type: 
  Country: None (occurrence: None)
  Receive Date: 20040610
  Receipt Date: 20040525
  Transmission Date: 20050107
  Serious: Yes (Hospitalization)
  Sender: FDA-Public Use
  Company Number: 198857

PATIENT
  Age: 49 Year
  Sex: Male
  Weight: 74.8435 kg

DRUGS (6)
  1. AVONEX [Suspect]
     Indication: MULTIPLE SCLEROSIS
     Dosage: 30 MCG QW IM
     Route: 030
     Dates: start: 20010501, end: 20030101
  2. AVONEX [Suspect]
     Indication: MULTIPLE SCLEROSIS
     Dosage: 30 MCG QW IM
     Route: 030
     Dates: start: 20030101, end: 20040501
  3. AVONEX [Suspect]
     Indication: MULTIPLE SCLEROSIS
     Dosage: 30 MCG QW IM
     Route: 030
     Dates: start: 20040526
  4. ZANAFLEX [Concomitant]
  5. PROVIGIL [Concomitant]
  6. DITROPAN XL [Concomitant]

REACTIONS (12)
  - BENIGN COLONIC POLYP [None]
  - BLOOD URINE [None]
  - BRONCHITIS [None]
  - COGNITIVE DISORDER [None]
  - CONDITION AGGRAVATED [None]
  - GAIT DISTURBANCE [None]
  - INFLUENZA LIKE ILLNESS [None]
  - INJECTION SITE PAIN [None]
  - INTESTINAL OBSTRUCTION [None]
  - OPHTHALMOPLEGIA [None]
  - OPTIC NEURITIS [None]
  - SCIATICA [None]
